FAERS Safety Report 8520525-7 (Version None)
Quarter: 2012Q3

REPORT INFORMATION
  Report Type: 
  Country: None (occurrence: None)
  Receive Date: 20120719
  Receipt Date: 20120713
  Transmission Date: 20120928
  Serious: Yes (Hospitalization)
  Sender: FDA-Public Use
  Company Number: FR-PFIZER INC-2012169200

PATIENT
  Age: 83 Year
  Sex: Female

DRUGS (3)
  1. SUTENT [Suspect]
     Dosage: 25 MG, 1X/DAY
     Dates: start: 20081222
  2. SUTENT [Suspect]
     Indication: RENAL CANCER
     Dosage: UNK
     Dates: start: 20080811
  3. FEMARA [Concomitant]

REACTIONS (2)
  - GENERAL PHYSICAL HEALTH DETERIORATION [None]
  - DYSGEUSIA [None]
